FAERS Safety Report 20606331 (Version 6)
Quarter: 2023Q1

REPORT INFORMATION
  Report Type: Report from Study
  Country: CA (occurrence: CA)
  Receive Date: 20220317
  Receipt Date: 20230217
  Transmission Date: 20230418
  Serious: Yes (Other)
  Sender: FDA-Public Use
  Company Number: CA-NOVARTISPH-PHHY2013CA007612

PATIENT
  Age: 57 Year
  Sex: Female

DRUGS (9)
  1. SANDOSTATIN [Suspect]
     Active Substance: OCTREOTIDE ACETATE
     Indication: Neuroendocrine tumour
     Dosage: UNK UNK, ONCE/SINGLE
     Route: 058
     Dates: start: 20121207, end: 20121207
  2. SANDOSTATIN [Suspect]
     Active Substance: OCTREOTIDE ACETATE
  3. SANDOSTATIN [Suspect]
     Active Substance: OCTREOTIDE ACETATE
  4. SANDOSTATIN LAR DEPOT [Suspect]
     Active Substance: OCTREOTIDE ACETATE
     Indication: Neuroendocrine tumour
     Dosage: 30 MG, Q4W
     Route: 030
     Dates: start: 20121227, end: 20130412
  5. SANDOSTATIN LAR DEPOT [Suspect]
     Active Substance: OCTREOTIDE ACETATE
     Dosage: 30 MG, 4W
     Route: 030
     Dates: start: 20130606
  6. SANDOSTATIN LAR DEPOT [Suspect]
     Active Substance: OCTREOTIDE ACETATE
     Dosage: 30 MG, Q4W
     Route: 030
     Dates: start: 20121227, end: 20130412
  7. SANDOSTATIN LAR DEPOT [Suspect]
     Active Substance: OCTREOTIDE ACETATE
     Dosage: 30 MG, Q4W
     Route: 030
     Dates: start: 20130606
  8. PANCRELIPASE [Concomitant]
     Active Substance: PANCRELIPASE
     Indication: Product used for unknown indication
     Dosage: 2 DF, QD
     Route: 048
  9. PANCRELIPASE [Concomitant]
     Active Substance: PANCRELIPASE
     Dosage: UNK
     Route: 065

REACTIONS (16)
  - Basal cell carcinoma [Unknown]
  - Second primary malignancy [Unknown]
  - Muscle spasms [Unknown]
  - Body temperature decreased [Unknown]
  - Nasopharyngitis [Unknown]
  - Blood pressure increased [Unknown]
  - Blood creatinine increased [Unknown]
  - Insomnia [Unknown]
  - Abdominal distension [Unknown]
  - Nausea [Unknown]
  - Diarrhoea [Unknown]
  - Pituitary cyst [Unknown]
  - Fatigue [Unknown]
  - Pancreatic disorder [Unknown]
  - Dizziness [Unknown]
  - Drug ineffective [Unknown]

NARRATIVE: CASE EVENT DATE: 20121227
